FAERS Safety Report 9493717 (Version 1)
Quarter: 2013Q3

REPORT INFORMATION
  Report Type: Spontaneous
  Country: US (occurrence: US)
  Receive Date: 20130902
  Receipt Date: 20130902
  Transmission Date: 20140515
  Serious: Yes (Other)
  Sender: FDA-Public Use
  Company Number: US-PFIZER INC-2013251681

PATIENT
  Sex: 0

DRUGS (8)
  1. IBUPROFEN [Suspect]
     Route: 065
  2. ALPRAZOLAM [Suspect]
     Dosage: UNK
     Route: 065
  3. ZOLPIDEM TARTRATE [Suspect]
     Dosage: UNK
     Route: 065
  4. TRAMADOL HYDROCHLORIDE [Suspect]
     Route: 065
  5. DIPHENHYDRAMINE [Suspect]
     Route: 065
  6. ACETAMINOPHEN [Suspect]
     Route: 065
  7. PAROXETINE [Suspect]
     Route: 065
  8. CLONAZEPAM [Suspect]

REACTIONS (2)
  - Overdose [Unknown]
  - Substance abuse [Unknown]
